FAERS Safety Report 5232786-0 (Version None)
Quarter: 2007Q1

REPORT INFORMATION
  Report Type: 
  Country: None (occurrence: None)
  Receive Date: 20070207
  Receipt Date: 20070125
  Transmission Date: 20070707
  Serious: Yes (Hospitalization)
  Sender: FDA-Public Use
  Company Number: US-BRISTOL-MYERS SQUIBB COMPANY-13657556

PATIENT
  Age: 76 Year
  Sex: Female
  Weight: 72 kg

DRUGS (4)
  1. COUMADIN [Suspect]
     Indication: HEART VALVE REPLACEMENT
     Dosage: CURRENT DOSE, TAKEN FOR THE LAST 1.5 MONTHS, IS 5MG X4DAYS AND 7.5MG X3DAYS.
     Route: 048
  2. SYNTHROID [Concomitant]
  3. VITAMIN CAP [Concomitant]
  4. CALTRATE + D [Concomitant]

REACTIONS (1)
  - COMPARTMENT SYNDROME [None]
